FAERS Safety Report 5163288-8 (Version None)
Quarter: 2006Q4

REPORT INFORMATION
  Report Type: 
  Country: None (occurrence: None)
  Receive Date: 20061204
  Receipt Date: 20061121
  Transmission Date: 20070319
  Serious: Yes (Hospitalization)
  Sender: FDA-Public Use
  Company Number: PHEH2006US14555

PATIENT
  Age: 39 Year
  Sex: Female

DRUGS (3)
  1. PROLEUKIN [Suspect]
     Indication: METASTATIC MALIGNANT MELANOMA
  2. LORTAB [Concomitant]
  3. IPILIMUMAB [Suspect]
     Indication: METASTATIC MALIGNANT MELANOMA

REACTIONS (6)
  - BLOOD BICARBONATE DECREASED [None]
  - BLOOD CHLORIDE INCREASED [None]
  - HYPOKALAEMIA [None]
  - POLYURIA [None]
  - RENAL TUBULAR ACIDOSIS [None]
  - THIRST [None]
